FAERS Safety Report 7562785-5 (Version None)
Quarter: 2011Q2

REPORT INFORMATION
  Report Type: 
  Country: None (occurrence: None)
  Receive Date: 20110622
  Receipt Date: 20110614
  Transmission Date: 20111010
  Serious: Yes (Disabling)
  Sender: FDA-Public Use
  Company Number: US-MUTUAL PHARMACEUTICAL COMPANY, INC.-MTCA20110949

PATIENT
  Sex: 0

DRUGS (6)
  1. METOCLOPRAMIDE [Suspect]
     Indication: GASTROOESOPHAGEAL REFLUX DISEASE
  2. REGLAN [Suspect]
     Indication: ABDOMINAL DISTENSION
     Route: 048
     Dates: start: 20070501, end: 20090501
  3. METOCLOPRAMIDE [Suspect]
     Indication: DYSPEPSIA
  4. REGLAN [Suspect]
     Indication: GASTROOESOPHAGEAL REFLUX DISEASE
  5. REGLAN [Suspect]
     Indication: DYSPEPSIA
  6. METOCLOPRAMIDE [Suspect]
     Indication: ABDOMINAL DISTENSION
     Route: 048
     Dates: start: 20070501, end: 20090501

REACTIONS (5)
  - TREMOR [None]
  - TARDIVE DYSKINESIA [None]
  - SPEECH DISORDER [None]
  - DYSTONIA [None]
  - PARKINSON'S DISEASE [None]
